FAERS Safety Report 5866508-7 (Version None)
Quarter: 2008Q3

REPORT INFORMATION
  Report Type: 
  Country: None (occurrence: None)
  Receive Date: 20080902
  Receipt Date: 20080902
  Transmission Date: 20090109
  Serious: Yes (Hospitalization)
  Sender: FDA-Public Use
  Company Number: PHEH1996US00027

PATIENT
  Sex: Male
  Weight: 70.4 kg

DRUGS (6)
  1. SANDIMMUNE [Suspect]
     Route: 048
     Dates: start: 19950313, end: 19951212
  2. PREDNISONE TAB [Concomitant]
  3. ZANTAC [Concomitant]
  4. SEPTRA DS [Concomitant]
  5. PROCARDIA XL [Concomitant]
  6. MICRONASE [Concomitant]

REACTIONS (3)
  - HEPATITIS [None]
  - LIVER FUNCTION TEST ABNORMAL [None]
  - TRANSPLANT REJECTION [None]
